FAERS Safety Report 9653644 (Version 2)
Quarter: 2013Q4

REPORT INFORMATION
  Report Type: Spontaneous
  Country: JP (occurrence: JP)
  Receive Date: 20131029
  Receipt Date: 20131108
  Transmission Date: 20140711
  Serious: Yes (Hospitalization)
  Sender: FDA-Public Use
  Company Number: JP-B.I. PHARMACEUTICALS,INC./RIDGEFIELD-2013-BI-34455GD

PATIENT
  Age: 47 Year
  Sex: Male

DRUGS (4)
  1. MICARDIS [Suspect]
     Indication: HYPERTENSION
     Dosage: 80 MG
     Route: 048
  2. AMLODIN [Suspect]
     Indication: HYPERTENSION
     Dosage: 10 MG
     Route: 048
  3. FLUITRAN [Suspect]
     Indication: HYPERTENSION
     Dosage: 2 MG
     Route: 048
  4. ALMARL [Concomitant]
     Indication: TACHYCARDIA

REACTIONS (3)
  - Phaeochromocytoma [Recovered/Resolved]
  - Pyelonephritis [Unknown]
  - Prostatitis [Unknown]
